FAERS Safety Report 12480459 (Version 4)
Quarter: 2016Q3

REPORT INFORMATION
  Report Type: Spontaneous
  Country: US (occurrence: US)
  Receive Date: 20160620
  Receipt Date: 20160812
  Transmission Date: 20161109
  Serious: No
  Sender: FDA-Public Use
  Company Number: US-ASTRAZENECA-2016SE66767

PATIENT
  Age: 86 Year
  Sex: Male
  Weight: 79.4 kg

DRUGS (1)
  1. NEXIUM 24HR [Suspect]
     Active Substance: ESOMEPRAZOLE MAGNESIUM
     Route: 048
     Dates: start: 201605, end: 201606

REACTIONS (6)
  - Product quality issue [Unknown]
  - Poor quality drug administered [Unknown]
  - Product commingling [Unknown]
  - Feeling abnormal [Unknown]
  - Abdominal pain upper [Recovering/Resolving]
  - Flatulence [Recovering/Resolving]

NARRATIVE: CASE EVENT DATE: 20160610
